FAERS Safety Report 10732772 (Version 1)
Quarter: 2015Q1

REPORT INFORMATION
  Report Type: Spontaneous
  Country: GB (occurrence: GB)
  Receive Date: 20150123
  Receipt Date: 20150123
  Transmission Date: 20150721
  Serious: Yes (Hospitalization)
  Sender: FDA-Public Use
  Company Number: GB-TEVA-535363ISR

PATIENT
  Age: 16 Year
  Sex: Female
  Weight: 40 kg

DRUGS (22)
  1. RANITIDINE [Concomitant]
     Active Substance: RANITIDINE\RANITIDINE HYDROCHLORIDE
     Dosage: 280 MILLIGRAM DAILY;
     Route: 048
  2. SODIUM CHLORIDE. [Concomitant]
     Active Substance: SODIUM CHLORIDE
     Dosage: 17 MILLIMOL DAILY;
     Route: 048
  3. VITAMIN A [Concomitant]
     Active Substance: VITAMIN A
     Dosage: 10000 IU (INTERNATIONAL UNIT) DAILY;
     Route: 048
  4. MESALAZINE [Concomitant]
     Active Substance: MESALAMINE
     Dosage: 500 MILLIGRAM DAILY;
     Route: 054
  5. OMEPRAZOLE. [Concomitant]
     Active Substance: OMEPRAZOLE
     Dosage: 10 MILLIGRAM DAILY;
     Route: 048
  6. SELENIUM [Concomitant]
     Active Substance: SELENIUM
     Dosage: 100 MICROGRAM DAILY;
     Route: 048
  7. TERBINAFINE [Concomitant]
     Active Substance: TERBINAFINE
     Dosage: 250 MILLIGRAM DAILY;
     Route: 048
  8. SALINE [Concomitant]
     Active Substance: SODIUM CHLORIDE
     Dosage: 24 ML DAILY;
  9. ITRACONAZOLE. [Concomitant]
     Active Substance: ITRACONAZOLE
     Dosage: 800 MILLIGRAM DAILY;
     Route: 048
  10. VITAMIN B COMPLEX STRONG [Concomitant]
     Dosage: 6 DOSAGE FORMS DAILY;
     Route: 048
  11. VITAMIN K SUBSTANCES [Concomitant]
     Dosage: 10 MILLIGRAM DAILY;
     Route: 048
  12. CYCLIZINE [Concomitant]
     Active Substance: CYCLIZINE
     Route: 042
  13. SALBUTAMOL [Concomitant]
     Active Substance: ALBUTEROL
  14. APREPITANT. [Interacting]
     Active Substance: APREPITANT
     Indication: NAUSEA
     Dosage: 160 MILLIGRAM DAILY;
     Route: 048
     Dates: start: 20141125, end: 20141209
  15. APREPITANT. [Interacting]
     Active Substance: APREPITANT
     Indication: NAUSEA
     Dosage: 250 MILLIGRAM DAILY;
     Route: 048
     Dates: start: 20141209
  16. COLECALCIFEROL [Concomitant]
     Active Substance: CHOLECALCIFEROL
     Dosage: 800 IU (INTERNATIONAL UNIT) DAILY;
     Route: 048
  17. DORNASE ALFA [Concomitant]
     Active Substance: DORNASE ALFA
     Dosage: 5 MILLIGRAM DAILY;
  18. FORCEVAL [Concomitant]
     Active Substance: FOLIC ACID\IRON\MINERALS\VITAMINS
  19. LOPERAMIDE [Concomitant]
     Active Substance: LOPERAMIDE
     Dosage: 4 MILLIGRAM DAILY;
     Route: 048
  20. CLARITHROMYCIN. [Suspect]
     Active Substance: CLARITHROMYCIN
     Indication: CYSTIC FIBROSIS
     Dosage: 500 MILLIGRAM DAILY;
     Route: 048
     Dates: start: 20141204, end: 20141231
  21. AMITRIPTYLINE [Concomitant]
     Active Substance: AMITRIPTYLINE
     Dosage: 40 MILLIGRAM DAILY;
     Route: 048
  22. CYCLIZINE [Concomitant]
     Active Substance: CYCLIZINE
     Dosage: 150 MILLIGRAM DAILY;
     Route: 048

REACTIONS (3)
  - Off label use [Unknown]
  - Drug interaction [Unknown]
  - Tachycardia [Unknown]

NARRATIVE: CASE EVENT DATE: 20141125
